FAERS Safety Report 6118959-3 (Version None)
Quarter: 2009Q1

REPORT INFORMATION
  Report Type: 
  Country: None (occurrence: None)
  Receive Date: 20090316
  Receipt Date: 20090309
  Transmission Date: 20090719
  Serious: Yes (Other)
  Sender: FDA-Public Use
  Company Number: US-ASTRAZENECA-2009UW06228

PATIENT
  Age: 65 Year
  Sex: Female

DRUGS (6)
  1. NEXIUM [Suspect]
     Indication: GASTROOESOPHAGEAL REFLUX DISEASE
     Route: 048
  2. ACCOLATE [Suspect]
     Indication: ASTHMA
     Route: 048
  3. TOBRAMYCIN [Concomitant]
  4. CELLCEPT [Concomitant]
  5. PROGRAF [Concomitant]
  6. 28 OTHER UNSPECIFIED DRUGS [Concomitant]

REACTIONS (3)
  - INFECTION [None]
  - LUNG TRANSPLANT REJECTION [None]
  - RENAL FAILURE CHRONIC [None]
